FAERS Safety Report 10066949 (Version 1)
Quarter: 2014Q2

REPORT INFORMATION
  Report Type: Report from Study
  Country: FR (occurrence: FR)
  Receive Date: 20140409
  Receipt Date: 20140409
  Transmission Date: 20141212
  Serious: Yes (Hospitalization)
  Sender: FDA-Public Use
  Company Number: FR-ROCHE-1374612

PATIENT
  Age: 52 Year
  Sex: Female

DRUGS (9)
  1. RITUXIMAB [Suspect]
     Indication: RHEUMATOID ARTHRITIS
     Dosage: DAY 1 INFUSION
     Route: 042
     Dates: start: 20080521
  2. RITUXIMAB [Suspect]
     Dosage: DAY 15 INFUSION
     Route: 042
     Dates: start: 20080625
  3. RITUXIMAB [Suspect]
     Dosage: DAY 1 INFUSION
     Route: 042
     Dates: start: 20091023
  4. RITUXIMAB [Suspect]
     Dosage: DAY 15 INFUSION
     Route: 042
     Dates: start: 20091109
  5. ROACTEMRA [Suspect]
     Indication: RHEUMATOID ARTHRITIS
     Route: 065
     Dates: start: 20100222
  6. METHOTREXATE [Concomitant]
     Route: 065
  7. METHOTREXATE [Concomitant]
     Route: 065
  8. CORTANCYL [Concomitant]
     Dosage: DAILY
     Route: 065
  9. CORTANCYL [Concomitant]
     Dosage: DAILY
     Route: 065

REACTIONS (3)
  - Uterine leiomyoma [Recovered/Resolved]
  - Influenza [Recovered/Resolved]
  - Purpura [Recovered/Resolved]
